FAERS Safety Report 15753834 (Version 2)
Quarter: 2019Q1

REPORT INFORMATION
  Report Type: Spontaneous
  Country: IT (occurrence: IT)
  Receive Date: 20181222
  Receipt Date: 20190112
  Transmission Date: 20190417
  Serious: Yes (Hospitalization, Other)
  Sender: FDA-Public Use
  Company Number: PHHY2018IT191013

PATIENT
  Age: 20 Year
  Sex: Female
  Weight: 38 kg

DRUGS (1)
  1. VORICONAZOLE. [Suspect]
     Active Substance: VORICONAZOLE
     Indication: ASPERGILLUS INFECTION
     Dosage: 100 MG, BID
     Route: 048

REACTIONS (3)
  - Hepatotoxicity [Recovered/Resolved]
  - Drug level increased [Recovered/Resolved]
  - Therapy partial responder [Unknown]
